FAERS Safety Report 4966867-3 (Version None)
Quarter: 2006Q2

REPORT INFORMATION
  Report Type: 
  Country: None (occurrence: None)
  Receive Date: 20060407
  Receipt Date: 20060329
  Transmission Date: 20061013
  Serious: Yes (Hospitalization, Disabling)
  Sender: FDA-Public Use
  Company Number: US-MERCK-0604USA00135

PATIENT
  Age: 56 Year
  Sex: Female
  Weight: 74 kg

DRUGS (2)
  1. VIOXX [Suspect]
     Indication: TEMPOROMANDIBULAR JOINT SYNDROME
     Route: 048
     Dates: start: 20030904, end: 20040701
  2. VIOXX [Suspect]
     Indication: PAIN
     Route: 048
     Dates: start: 20030904, end: 20040701

REACTIONS (1)
  - CEREBRAL ARTERY OCCLUSION [None]
